FAERS Safety Report 5846780-X (Version None)
Quarter: 2008Q3

REPORT INFORMATION
  Report Type: 
  Country: None (occurrence: None)
  Receive Date: 20080815
  Receipt Date: 20080806
  Transmission Date: 20090109
  Serious: Yes (Death, Other)
  Sender: FDA-Public Use
  Company Number: US-MERCK-0808USA01167

PATIENT
  Age: 41 Year
  Sex: Female

DRUGS (2)
  1. CANCIDAS [Suspect]
     Indication: INFECTIOUS DISEASE CARRIER
     Route: 042
  2. CANCIDAS [Suspect]
     Route: 042

REACTIONS (3)
  - HEPATIC FUNCTION ABNORMAL [None]
  - MULTI-ORGAN FAILURE [None]
  - THERAPEUTIC RESPONSE DECREASED [None]
